FAERS Safety Report 22654081 (Version 5)
Quarter: 2025Q3

REPORT INFORMATION
  Report Type: Report from Study
  Country: EU (occurrence: EU)
  Receive Date: 20230629
  Receipt Date: 20250813
  Transmission Date: 20251021
  Serious: Yes (Death, Other)
  Sender: GILEAD
  Company Number: EU-GILEAD-2023-0633881

PATIENT

DRUGS (5)
  1. TENOFOVIR ALAFENAMIDE [Suspect]
     Active Substance: TENOFOVIR ALAFENAMIDE
     Indication: HIV infection
     Route: 064
  2. EMTRICITABINE [Suspect]
     Active Substance: EMTRICITABINE
     Indication: HIV infection
     Route: 064
  3. TENOFOVIR DISOPROXIL FUMARATE [Suspect]
     Active Substance: TENOFOVIR DISOPROXIL FUMARATE
     Indication: Product used for unknown indication
     Route: 064
  4. PREZCOBIX [Suspect]
     Active Substance: COBICISTAT\DARUNAVIR ETHANOLATE
     Indication: Product used for unknown indication
     Route: 064
  5. DOLUTEGRAVIR [Suspect]
     Active Substance: DOLUTEGRAVIR
     Indication: Product used for unknown indication
     Route: 064

REACTIONS (9)
  - Death [Fatal]
  - Dyslipidaemia [Unknown]
  - Osteoporosis [Unknown]
  - Renal disorder [Unknown]
  - Nervous system disorder [Unknown]
  - Fat redistribution [Unknown]
  - Virologic failure [Unknown]
  - Cardiovascular disorder [Unknown]
  - Foetal exposure during pregnancy [Recovered/Resolved]
